FAERS Safety Report 11222344 (Version 1)
Quarter: 2015Q2

REPORT INFORMATION
  Report Type: Spontaneous
  Country: IT (occurrence: IT)
  Receive Date: 20150626
  Receipt Date: 20150626
  Transmission Date: 20150821
  Serious: Yes (Hospitalization)
  Sender: FDA-Public Use
  Company Number: IT-HOSPIRA-2618250

PATIENT
  Age: 70 Year
  Sex: Female

DRUGS (7)
  1. BEVACIZUMAB [Suspect]
     Active Substance: BEVACIZUMAB
     Indication: COLON CANCER
     Route: 042
     Dates: start: 20120114, end: 20120217
  2. CONDIUREN [Concomitant]
     Active Substance: ENALAPRIL MALEATE\HYDROCHLOROTHIAZIDE
     Indication: HYPERTENSION
     Route: 048
  3. FLUOROURACIL. [Suspect]
     Active Substance: FLUOROURACIL
     Indication: COLON CANCER
     Route: 042
     Dates: start: 20120114, end: 20120217
  4. LEDERFOLIN [Suspect]
     Active Substance: LEUCOVORIN CALCIUM
     Indication: COLON CANCER
     Route: 042
     Dates: start: 20120114, end: 20120217
  5. XANAX [Concomitant]
     Active Substance: ALPRAZOLAM
     Indication: PANIC DISORDER
     Route: 048
  6. CITALOPRAM [Concomitant]
     Active Substance: CITALOPRAM HYDROBROMIDE
     Indication: PANIC DISORDER
     Route: 048
  7. OXALIPLATIN. [Suspect]
     Active Substance: OXALIPLATIN
     Indication: COLON CANCER
     Route: 042
     Dates: start: 20120114, end: 20120217

REACTIONS (7)
  - Thirst [Unknown]
  - Asthenia [Recovered/Resolved]
  - Vomiting [Recovered/Resolved]
  - Diarrhoea [Recovered/Resolved]
  - Leukopenia [Recovered/Resolved]
  - Acute kidney injury [Recovered/Resolved]
  - Decreased appetite [Unknown]

NARRATIVE: CASE EVENT DATE: 20120217
